FAERS Safety Report 5115232-7 (Version None)
Quarter: 2006Q3

REPORT INFORMATION
  Report Type: 
  Country: None (occurrence: None)
  Receive Date: 20060922
  Receipt Date: 20060830
  Transmission Date: 20061208
  Serious: Yes (Hospitalization, Disabling, Other)
  Sender: FDA-Public Use
  Company Number: 2006108541

PATIENT
  Age: 49 Year
  Sex: Female
  Weight: 77.1115 kg

DRUGS (1)
  1. BEXTRA [Suspect]
     Indication: BACK PAIN
     Dosage: 10 MG (10 MG, 1 IN 1 D)
     Dates: start: 20040430

REACTIONS (2)
  - CEREBROVASCULAR ACCIDENT [None]
  - COMA [None]
